FAERS Safety Report 6368031-2 (Version None)
Quarter: 2009Q3

REPORT INFORMATION
  Report Type: 
  Country: None (occurrence: None)
  Receive Date: 20090922
  Receipt Date: 20090914
  Transmission Date: 20100115
  Serious: Yes (Hospitalization, Disabling)
  Sender: FDA-Public Use
  Company Number: DE-BAYER-200932077GPV

PATIENT
  Age: 42 Year
  Sex: Female
  Weight: 55 kg

DRUGS (1)
  1. MIRENA [Suspect]
     Indication: MENORRHAGIA
     Route: 015
     Dates: start: 20081215

REACTIONS (9)
  - ABDOMINAL PAIN [None]
  - ACNE [None]
  - ANXIETY [None]
  - DEPRESSED MOOD [None]
  - GENITAL HAEMORRHAGE [None]
  - HEADACHE [None]
  - MOOD SWINGS [None]
  - RESTLESSNESS [None]
  - WEIGHT DECREASED [None]
